FAERS Safety Report 4455706-5 (Version None)
Quarter: 2004Q3

REPORT INFORMATION
  Report Type: 
  Country: None (occurrence: None)
  Receive Date: 20040920
  Receipt Date: 20040920
  Transmission Date: 20050211
  Serious: Yes (Other)
  Sender: FDA-Public Use
  Company Number: None

PATIENT
  Age: 34 Year
  Sex: Female
  Weight: 69 kg

DRUGS (19)
  1. GAMUNEX [Suspect]
     Indication: AUTOANTIBODY POSITIVE
     Dosage: 140 GM IV Q MONTH
     Route: 042
     Dates: start: 20040124
  2. GAMUNEX [Suspect]
     Indication: AUTOANTIBODY POSITIVE
     Dosage: 140 GM IV Q MONTH
     Route: 042
     Dates: start: 20040225
  3. GAMUNEX [Suspect]
     Indication: AUTOANTIBODY POSITIVE
     Dosage: 140 GM IV Q MONTH
     Route: 042
     Dates: start: 20040326
  4. GAMUNEX [Suspect]
  5. GAMUNEX [Suspect]
  6. GAMUNEX [Suspect]
  7. IMMUNE GLOBULIN INTRAVENOUS (HUMAN) [Concomitant]
  8. SIROLIMUS [Concomitant]
  9. ATENOLOL [Concomitant]
  10. VIT C [Concomitant]
  11. FISH OIL [Concomitant]
  12. CALCIUM [Concomitant]
  13. VITAMIN B COMPLEX CAP [Concomitant]
  14. BACTRIM DS [Concomitant]
  15. TACROLIMUS [Concomitant]
  16. NIFEREX [Concomitant]
  17. GLUCOSAMINE [Concomitant]
  18. GELATIN [Concomitant]
  19. ORTHO TRI-CYCLEN [Concomitant]

REACTIONS (5)
  - ABDOMINAL PAIN UPPER [None]
  - BACK PAIN [None]
  - PORTAL VEIN THROMBOSIS [None]
  - REFUSAL OF TREATMENT BY PATIENT [None]
  - TREATMENT NONCOMPLIANCE [None]
